FAERS Safety Report 13343489 (Version 1)
Quarter: 2017Q1

REPORT INFORMATION
  Report Type: Spontaneous
  Country: US (occurrence: US)
  Receive Date: 20170316
  Receipt Date: 20170316
  Transmission Date: 20170428
  Serious: Yes (Other)
  Sender: FDA-Public Use
  Company Number: US-ASTRAZENECA-2017SE27160

PATIENT
  Age: 27869 Day
  Sex: Female

DRUGS (8)
  1. FASLODEX [Suspect]
     Active Substance: FULVESTRANT
     Route: 030
  2. CALCIUM-D [Concomitant]
     Route: 048
  3. FASLODEX [Suspect]
     Active Substance: FULVESTRANT
     Route: 030
     Dates: start: 201210
  4. NOLVADEX [Suspect]
     Active Substance: TAMOXIFEN CITRATE
     Route: 048
     Dates: start: 201608
  5. TOPROL XL [Suspect]
     Active Substance: METOPROLOL SUCCINATE
     Route: 048
  6. IBRANCE [Concomitant]
     Active Substance: PALBOCICLIB
     Route: 048
     Dates: start: 20170206
  7. GLUCOTROL XL [Concomitant]
     Active Substance: GLIPIZIDE
     Route: 058
  8. XGEVA [Concomitant]
     Active Substance: DENOSUMAB
     Route: 058

REACTIONS (11)
  - Metastases to trachea [Unknown]
  - Pulmonary fibrosis [Unknown]
  - Metastases to liver [Unknown]
  - Metastases to pleura [Unknown]
  - Blood glucose increased [Unknown]
  - Malignant neoplasm progression [Unknown]
  - Cholelithiasis [Unknown]
  - Metastases to lung [Unknown]
  - Metastases to bone [Unknown]
  - Arteriosclerosis coronary artery [Unknown]
  - Renal cyst [Unknown]

NARRATIVE: CASE EVENT DATE: 20160824
